FAERS Safety Report 10962512 (Version 1)
Quarter: 2015Q1

REPORT INFORMATION
  Report Type: Spontaneous
  Country: TR (occurrence: TR)
  Receive Date: 20150327
  Receipt Date: 20150327
  Transmission Date: 20150721
  Serious: Yes (Other)
  Sender: FDA-Public Use
  Company Number: TR-ELI_LILLY_AND_COMPANY-TR201503007718

PATIENT
  Age: 38 Year
  Sex: Male

DRUGS (2)
  1. AZELDERM [Suspect]
     Active Substance: AZELAIC ACID
     Dosage: UNK, UNKNOWN
     Route: 065
  2. PROZAC [Suspect]
     Active Substance: FLUOXETINE HYDROCHLORIDE
     Indication: DEPRESSION
     Dosage: UNK UNK, UNKNOWN
     Route: 065
     Dates: start: 2012

REACTIONS (3)
  - Blood iron decreased [Unknown]
  - Scar [Not Recovered/Not Resolved]
  - Pigmentation disorder [Not Recovered/Not Resolved]
